FAERS Safety Report 10498311 (Version 1)
Quarter: 2014Q4

REPORT INFORMATION
  Report Type: Spontaneous
  Country: FR (occurrence: FR)
  Receive Date: 20141006
  Receipt Date: 20141006
  Transmission Date: 20150528
  Serious: Yes (Life-Threatening, Hospitalization)
  Sender: FDA-Public Use
  Company Number: PHHY2014FR128323

PATIENT
  Age: 51 Year
  Sex: Female

DRUGS (3)
  1. FAT EMULSION NOS [Suspect]
     Active Substance: EGG PHOSPHOLIPIDS\SAFFLOWER OIL\SOYBEAN OIL
     Dosage: 0.20 ML.KG/MIN
     Route: 042
  2. VERAPAMIL [Suspect]
     Active Substance: VERAPAMIL HYDROCHLORIDE
     Dosage: 40 DF,-9.6MG
  3. FAT EMULSION NOS [Suspect]
     Active Substance: EGG PHOSPHOLIPIDS\SAFFLOWER OIL\SOYBEAN OIL
     Indication: OVERDOSE
     Dosage: 100 ML, UNK
     Route: 040

REACTIONS (10)
  - Sinus bradycardia [Unknown]
  - Hepatocellular injury [Unknown]
  - Haemodynamic instability [Unknown]
  - Metabolic acidosis [Unknown]
  - Renal failure [Unknown]
  - Hypotension [Unknown]
  - Overdose [Unknown]
  - Acute respiratory distress syndrome [Recovered/Resolved]
  - Acute kidney injury [Unknown]
  - Hypertriglyceridaemia [Unknown]
